FAERS Safety Report 12892309 (Version 1)
Quarter: 2016Q4

REPORT INFORMATION
  Report Type: Spontaneous
  Country: BR (occurrence: BR)
  Receive Date: 20161028
  Receipt Date: 20161028
  Transmission Date: 20170207
  Serious: Yes (Death, Other)
  Sender: FDA-Public Use
  Company Number: PHHY2016BR147471

PATIENT
  Sex: Female

DRUGS (1)
  1. REVOLADE [Suspect]
     Active Substance: ELTROMBOPAG
     Indication: APLASTIC ANAEMIA
     Dosage: 150 MG,  FOR 10 TO 15 DAYS
     Route: 065

REACTIONS (5)
  - Thrombosis [Unknown]
  - Haemorrhage [Unknown]
  - Sepsis [Fatal]
  - Leukopenia [Not Recovered/Not Resolved]
  - Product use issue [Unknown]
